FAERS Safety Report 19868787 (Version 1)
Quarter: 2021Q3

REPORT INFORMATION
  Report Type: Spontaneous
  Country: JP (occurrence: JP)
  Receive Date: 20210922
  Receipt Date: 20210922
  Transmission Date: 20211014
  Serious: Yes (Other)
  Sender: FDA-Public Use
  Company Number: JP-OTSUKA-2021_028732

PATIENT

DRUGS (1)
  1. SAMSCA [Suspect]
     Active Substance: TOLVAPTAN
     Indication: ASCITES
     Dosage: UNK
     Route: 065

REACTIONS (6)
  - Hypernatraemia [Unknown]
  - Rash [Unknown]
  - Muscle spasms [Unknown]
  - Hepatic encephalopathy [Unknown]
  - Thirst [Unknown]
  - Dehydration [Unknown]
